FAERS Safety Report 22137606 (Version 1)
Quarter: 2023Q1

REPORT INFORMATION
  Report Type: Spontaneous
  Country: FI (occurrence: FI)
  Receive Date: 20230325
  Receipt Date: 20230325
  Transmission Date: 20230417
  Serious: Yes (Death, Hospitalization, Other)
  Sender: FDA-Public Use
  Company Number: FI-ABBVIE-4700438

PATIENT
  Sex: Male

DRUGS (8)
  1. VENETOCLAX [Suspect]
     Active Substance: VENETOCLAX
     Indication: Product used for unknown indication
     Route: 048
     Dates: start: 20210527, end: 20210609
  2. VENETOCLAX [Suspect]
     Active Substance: VENETOCLAX
     Indication: Product used for unknown indication
     Route: 048
     Dates: start: 20170726, end: 20180928
  3. VENETOCLAX [Suspect]
     Active Substance: VENETOCLAX
     Indication: Product used for unknown indication
     Route: 048
  4. IBRUTINIB [Suspect]
     Active Substance: IBRUTINIB
     Indication: Product used for unknown indication
     Route: 048
     Dates: start: 20180928
  5. IBRUTINIB [Suspect]
     Active Substance: IBRUTINIB
     Indication: Product used for unknown indication
     Route: 048
     Dates: start: 202006
  6. IBRUTINIB [Suspect]
     Active Substance: IBRUTINIB
     Indication: Product used for unknown indication
     Dosage: REDUCED DOSE
     Route: 048
     Dates: start: 2020
  7. CORTISONE [Concomitant]
     Active Substance: CORTISONE
     Indication: Product used for unknown indication
  8. PREDNISOLONE [Concomitant]
     Active Substance: PREDNISOLONE
     Indication: Product used for unknown indication

REACTIONS (29)
  - Death [Fatal]
  - Pseudomonas infection [Unknown]
  - Chronic lymphocytic leukaemia [Unknown]
  - Peripancreatic fluid collection [Unknown]
  - Lymphadenopathy [Unknown]
  - Haemorrhage [Unknown]
  - Human rhinovirus test positive [Unknown]
  - Fungal oesophagitis [Unknown]
  - B-cell small lymphocytic lymphoma [Unknown]
  - Atrial fibrillation [Unknown]
  - Pain [Unknown]
  - Lung consolidation [Unknown]
  - General physical health deterioration [Unknown]
  - Splenic haemorrhage [Unknown]
  - Pulmonary embolism [Unknown]
  - Lymphadenopathy [Unknown]
  - Lung disorder [Unknown]
  - Breath sounds abnormal [Unknown]
  - Systemic candida [Unknown]
  - Productive cough [Unknown]
  - Lymphadenopathy [Recovered/Resolved]
  - Mucosal disorder [Unknown]
  - Weight decreased [Unknown]
  - Tracheomalacia [Unknown]
  - Lymphadenopathy [Recovered/Resolved]
  - General physical health deterioration [Unknown]
  - Cholecystitis [Unknown]
  - Respiratory tract infection [Unknown]
  - Lung opacity [Unknown]

NARRATIVE: CASE EVENT DATE: 20170101
